FAERS Safety Report 21601712 (Version 1)
Quarter: 2022Q4

REPORT INFORMATION
  Report Type: Report from Study
  Country: US (occurrence: US)
  Receive Date: 20221116
  Receipt Date: 20221116
  Transmission Date: 20230113
  Serious: No
  Sender: FDA-Public Use
  Company Number: US-002147023-NVSC2022US257198

PATIENT
  Age: 75 Year
  Sex: Female

DRUGS (1)
  1. LEQVIO [Suspect]
     Active Substance: INCLISIRAN SODIUM
     Indication: Product used for unknown indication
     Dosage: UNK
     Route: 058
     Dates: start: 20221025

REACTIONS (5)
  - Diarrhoea [Unknown]
  - Constipation [Unknown]
  - Haemorrhoids [Unknown]
  - Flatulence [Unknown]
  - Injection site pain [Unknown]

NARRATIVE: CASE EVENT DATE: 20221025
